FAERS Safety Report 17070540 (Version 1)
Quarter: 2019Q4

REPORT INFORMATION
  Report Type: Spontaneous
  Country: US (occurrence: US)
  Receive Date: 20191125
  Receipt Date: 20191125
  Transmission Date: 20200122
  Serious: No
  Sender: FDA-Public Use
  Company Number: US-009507513-1911USA008348

PATIENT
  Age: 84 Year
  Sex: Female

DRUGS (1)
  1. ASMANEX [Suspect]
     Active Substance: MOMETASONE FUROATE
     Indication: ASTHMA
     Dosage: ONE PUFF ONCE DAILY, ORAL INHALATION
     Dates: start: 2010

REACTIONS (2)
  - Product dose omission [Unknown]
  - Circumstance or information capable of leading to medication error [Unknown]
